FAERS Safety Report 5326581-1 (Version None)
Quarter: 2007Q2

REPORT INFORMATION
  Report Type: 
  Country: None (occurrence: None)
  Receive Date: 20070503
  Receipt Date: 20070420
  Transmission Date: 20071010
  Serious: Yes (Death)
  Sender: FDA-Public Use
  Company Number: M-07-501

PATIENT
  Age: 80 Year
  Sex: Female

DRUGS (1)
  1. PROFILNINE SD [Suspect]
     Indication: ILL-DEFINED DISORDER
     Dosage: 5070 IU; TIMES 1; IV PUSH
     Route: 042
     Dates: start: 20070228

REACTIONS (1)
  - THROMBOSIS [None]
